FAERS Safety Report 13067401 (Version 8)
Quarter: 2017Q2

REPORT INFORMATION
  Report Type: Report from Study
  Country: KR (occurrence: KR)
  Receive Date: 20161228
  Receipt Date: 20170630
  Transmission Date: 20170830
  Serious: Yes (Death, Hospitalization)
  Sender: FDA-Public Use
  Company Number: KR-ROCHE-1871133

PATIENT
  Age: 52 Year
  Sex: Male
  Weight: 70 kg

DRUGS (24)
  1. LIDOCAINE. [Concomitant]
     Active Substance: LIDOCAINE
     Dosage: UNKNOWN
     Route: 065
     Dates: start: 20161222, end: 20161224
  2. PENIRAMIN [Concomitant]
     Indication: CONTRAST MEDIA ALLERGY
     Route: 042
     Dates: start: 20161123, end: 20161123
  3. ALBUMIN [Concomitant]
     Active Substance: ALBUMIN HUMAN
     Indication: HYPOALBUMINAEMIA
     Route: 042
     Dates: start: 20161220, end: 20161220
  4. EASYEF [Concomitant]
     Route: 061
     Dates: start: 20161223, end: 20161223
  5. SODIUM BICARBONATE. [Concomitant]
     Active Substance: SODIUM BICARBONATE
     Indication: MUCOSAL INFLAMMATION
     Dosage: GARGLE
     Route: 061
     Dates: start: 20161214, end: 20161219
  6. DEXTROSE/SODIUM CHLORIDE [Concomitant]
     Indication: DECREASED APPETITE
     Route: 042
     Dates: start: 20161220, end: 20161220
  7. ENCOVER [Concomitant]
     Indication: DECREASED APPETITE
     Route: 048
     Dates: start: 20161214, end: 20161219
  8. BEECOM HEXA [Concomitant]
     Indication: DECREASED APPETITE
     Route: 042
     Dates: start: 20161220, end: 20161224
  9. HEPARIN [Concomitant]
     Active Substance: HEPARIN SODIUM
     Dosage: UNKNOWN
     Route: 065
     Dates: start: 20161222, end: 20161224
  10. TRIDOL [Concomitant]
     Active Substance: TRAMADOL HYDROCHLORIDE
     Indication: PAIN
     Route: 042
     Dates: start: 20161223, end: 20161223
  11. TABAXIN [Concomitant]
     Active Substance: PIPERACILLIN SODIUM\TAZOBACTAM SODIUM
     Indication: INFECTION
     Route: 042
     Dates: start: 20161224, end: 20161224
  12. COBIMETINIB [Suspect]
     Active Substance: COBIMETINIB
     Indication: COLORECTAL ADENOCARCINOMA
     Dosage: MOST RECENT DOSE OF COBIMETINIB: 60 MG ON 19/DEC/2016
     Route: 048
     Dates: start: 20161130
  13. MINOCIN [Concomitant]
     Active Substance: MINOCYCLINE HYDROCHLORIDE
     Indication: RASH
     Route: 048
     Dates: start: 20161214, end: 20161219
  14. FURTMAN INJ. [Concomitant]
     Indication: DEHYDRATION
     Route: 042
     Dates: start: 20161220, end: 20161224
  15. AD-MUC (SOUTH KOREA) [Concomitant]
     Indication: MUCOSAL INFLAMMATION
     Route: 061
     Dates: start: 20161222, end: 20161224
  16. ATEZOLIZUMAB [Suspect]
     Active Substance: ATEZOLIZUMAB
     Indication: COLORECTAL ADENOCARCINOMA
     Dosage: MOST RECENT DOSE OF ATEZOLIZUMAB: 840 MG ON 14/DEC/2016 AT 14:40
     Route: 042
     Dates: start: 20161130
  17. NORMAL SALINE [Concomitant]
     Active Substance: SODIUM CHLORIDE
     Indication: DEHYDRATION
     Route: 065
     Dates: start: 20161224, end: 20161224
  18. NORVASC [Concomitant]
     Active Substance: AMLODIPINE BESYLATE
     Indication: HYPERTENSION
     Route: 048
     Dates: start: 20161109, end: 20161214
  19. HEPAMERZ INFUSION [Concomitant]
     Indication: ASPARTATE AMINOTRANSFERASE INCREASED
  20. SODIUM CHLORIDE. [Concomitant]
     Active Substance: SODIUM CHLORIDE
     Indication: HYPONATRAEMIA
     Route: 042
     Dates: start: 20161220, end: 20161222
  21. MORPHINE [Concomitant]
     Active Substance: MORPHINE
     Indication: PAIN
     Route: 042
     Dates: start: 20161224, end: 20161224
  22. HEPAMERZ INFUSION [Concomitant]
     Indication: ALANINE AMINOTRANSFERASE INCREASED
     Route: 042
     Dates: start: 20161220, end: 20161224
  23. SODIUM CHLORIDE. [Concomitant]
     Active Substance: SODIUM CHLORIDE
     Route: 042
     Dates: start: 20161223, end: 20161224
  24. HEXAMEDINE [Concomitant]
     Indication: MUCOSAL INFLAMMATION
     Route: 061
     Dates: start: 20161221, end: 20161223

REACTIONS (2)
  - Colitis [Recovered/Resolved]
  - Acute kidney injury [Fatal]

NARRATIVE: CASE EVENT DATE: 20161210
